FAERS Safety Report 6366078-3 (Version None)
Quarter: 2009Q3

REPORT INFORMATION
  Report Type: 
  Country: None (occurrence: None)
  Receive Date: 20090920
  Receipt Date: 20080711
  Transmission Date: 20100115
  Serious: No
  Sender: FDA-Public Use
  Company Number: US-BAUSCH-2008BL002594

PATIENT
  Age: 73 Year
  Sex: Female

DRUGS (4)
  1. PREDNISOLONE SODIUM PHOSPHATE [Suspect]
     Indication: POSTOPERATIVE CARE
     Route: 047
     Dates: start: 20080513, end: 20080628
  2. PREDNISOLONE SODIUM PHOSPHATE [Suspect]
     Indication: CATARACT OPERATION
     Route: 047
     Dates: start: 20080513, end: 20080628
  3. VICODIN [Concomitant]
  4. ANAPROX [Concomitant]

REACTIONS (1)
  - PUNCTATE KERATITIS [None]
